FAERS Safety Report 9208976 (Version 1)
Quarter: 2013Q1

REPORT INFORMATION
  Report Type: Spontaneous
  Country: US (occurrence: None)
  Receive Date: 20120820
  Receipt Date: 20120820
  Transmission Date: 20140127
  Serious: Yes (Other)
  Sender: FDA-Public Use
  Company Number: 059613

PATIENT
  Sex: Female

DRUGS (2)
  1. LACOSAMIDE [Suspect]
     Route: 048
     Dates: start: 201205, end: 201206
  2. KEPPRA [Concomitant]

REACTIONS (2)
  - Suicidal ideation [None]
  - Depression [None]
